FAERS Safety Report 8968846 (Version 1)
Quarter: 2012Q4

REPORT INFORMATION
  Report Type: 
  Country: US (occurrence: US)
  Receive Date: 20121218
  Receipt Date: 20121218
  Transmission Date: 20130627
  Serious: No
  Sender: FDA-Public Use
  Company Number: US-BRISTOL-MYERS SQUIBB COMPANY-16365660

PATIENT
  Age: 59 Year
  Sex: Female

DRUGS (12)
  1. ABILIFY [Suspect]
     Dosage: Duration: about 7 years
  2. MIRAPEX [Concomitant]
  3. PREVACID [Concomitant]
  4. VERAPAMIL [Concomitant]
  5. NEURONTIN [Concomitant]
  6. VISTARIL [Concomitant]
  7. ANTIVERT [Concomitant]
  8. LISINOPRIL [Concomitant]
  9. CLORAZEPATE [Concomitant]
  10. LEXAPRO [Concomitant]
  11. FLEXERIL [Concomitant]
  12. ZYRTEC [Concomitant]

REACTIONS (2)
  - Muscle twitching [Not Recovered/Not Resolved]
  - Tremor [Not Recovered/Not Resolved]
